FAERS Safety Report 14980051 (Version 1)
Quarter: 2018Q2

REPORT INFORMATION
  Report Type: Spontaneous
  Country: PL (occurrence: PL)
  Receive Date: 20180606
  Receipt Date: 20180606
  Transmission Date: 20180711
  Serious: Yes (Hospitalization)
  Sender: FDA-Public Use
  Company Number: PL-ANIPHARMA-2018-PL-000017

PATIENT
  Age: 45 Year
  Sex: Male

DRUGS (2)
  1. OXCARBAZEPINE (NON-SPECIFIC) [Suspect]
     Active Substance: OXCARBAZEPINE
  2. LEVETIRACETAM. [Suspect]
     Active Substance: LEVETIRACETAM

REACTIONS (1)
  - Drug reaction with eosinophilia and systemic symptoms [Unknown]
